FAERS Safety Report 15860895 (Version 1)
Quarter: 2019Q1

REPORT INFORMATION
  Report Type: Spontaneous
  Country: US (occurrence: US)
  Receive Date: 20190124
  Receipt Date: 20190124
  Transmission Date: 20190417
  Serious: No
  Sender: FDA-Public Use
  Company Number: US-INSYS THERAPEUTICS, INC-INS201812-000437

PATIENT
  Sex: Female

DRUGS (2)
  1. SYNDROS [Suspect]
     Active Substance: DRONABINOL
     Indication: NAUSEA
  2. SYNDROS [Suspect]
     Active Substance: DRONABINOL
     Indication: VOMITING

REACTIONS (1)
  - Malaise [Unknown]
